FAERS Safety Report 6410211-1 (Version None)
Quarter: 2009Q4

REPORT INFORMATION
  Report Type: 
  Country: None (occurrence: None)
  Receive Date: 20091022
  Receipt Date: 20091009
  Transmission Date: 20100525
  Serious: Yes (Other)
  Sender: FDA-Public Use
  Company Number: PHEH2009US13926

PATIENT
  Age: 75 Year
  Sex: Female

DRUGS (1)
  1. RECLAST [Suspect]
     Indication: OSTEOPOROSIS
     Dosage: UNK
     Dates: start: 20090403

REACTIONS (6)
  - ARTHRALGIA [None]
  - HEADACHE [None]
  - JAW DISORDER [None]
  - MYALGIA [None]
  - NAUSEA [None]
  - PAIN IN JAW [None]
